FAERS Safety Report 15220098 (Version 1)
Quarter: 2018Q3

REPORT INFORMATION
  Report Type: Spontaneous
  Country: US (occurrence: US)
  Receive Date: 20180704
  Receipt Date: 20180704
  Transmission Date: 20181010
  Serious: Yes (Hospitalization)
  Sender: FDA-Public Use
  Company Number: None

PATIENT
  Age: 71 Year
  Sex: Female

DRUGS (4)
  1. LASIX 20MG [Concomitant]
  2. ATENOLOL 25MG [Concomitant]
     Active Substance: ATENOLOL
  3. TASIGNA [Suspect]
     Active Substance: NILOTINIB
     Indication: PRODUCT USED FOR UNKNOWN INDICATION
     Route: 048
     Dates: start: 20180222
  4. MORPHINE SULFATE 15MG [Concomitant]

REACTIONS (2)
  - Dyspnoea [None]
  - Hip arthroplasty [None]

NARRATIVE: CASE EVENT DATE: 20180701
